FAERS Safety Report 12871605 (Version 1)
Quarter: 2016Q4

REPORT INFORMATION
  Report Type: Spontaneous
  Country: US (occurrence: US)
  Receive Date: 20161020
  Receipt Date: 20161020
  Transmission Date: 20170207
  Serious: No
  Sender: FDA-Public Use
  Company Number: None

PATIENT
  Age: 82 Year
  Sex: Female

DRUGS (1)
  1. JAKAFI [Suspect]
     Active Substance: RUXOLITINIB
     Indication: HISTIOCYTOSIS HAEMATOPHAGIC
     Route: 048
     Dates: start: 20160625, end: 20160921

REACTIONS (12)
  - Asthenia [None]
  - Headache [None]
  - Pain in extremity [None]
  - Muscle spasms [None]
  - Rash [None]
  - Faeces discoloured [None]
  - Dizziness [None]
  - Platelet count increased [None]
  - Urine analysis abnormal [None]
  - Swelling [None]
  - Increased viscosity of upper respiratory secretion [None]
  - Diarrhoea [None]

NARRATIVE: CASE EVENT DATE: 20160901
